FAERS Safety Report 12125079 (Version 1)
Quarter: 2016Q1

REPORT INFORMATION
  Report Type: Spontaneous
  Country: JP (occurrence: JP)
  Receive Date: 20160229
  Receipt Date: 20160229
  Transmission Date: 20160526
  Serious: Yes (Death, Hospitalization)
  Sender: FDA-Public Use
  Company Number: JP-ROCHE-1716863

PATIENT
  Age: 74 Year
  Sex: Female

DRUGS (12)
  1. COPEGUS [Suspect]
     Active Substance: RIBAVIRIN
     Indication: CHRONIC HEPATITIS C
     Dosage: THE FRACTIONATION DOSE FREQUENCY IS UNCERTAIN. ?DOSE INTERVAL UNCERTAINTY
     Route: 048
     Dates: start: 20151015
  2. MEMARY [Concomitant]
     Active Substance: MEMANTINE HYDROCHLORIDE
     Dosage: DOSAGE IS UNCERTAIN.
     Route: 048
     Dates: start: 20151218, end: 20151224
  3. LIMAPROST ALFADEX [Concomitant]
     Active Substance: LIMAPROST
     Dosage: DOSAGE IS UNCERTAIN.
     Route: 048
     Dates: start: 20151215, end: 20151215
  4. SOVALDI [Suspect]
     Active Substance: SOFOSBUVIR
     Indication: CHRONIC HEPATITIS C
     Dosage: THE FREQUENCY IS UNCERTAIN AS DIVIDE. ?DOSE INTERVAL UNCERTAINTY
     Route: 048
     Dates: start: 20151015, end: 20160106
  5. LECICARBON [Concomitant]
     Active Substance: SODIUM BICARBONATE\SODIUM PHOSPHATE, MONOBASIC
     Dosage: DOSAGE IS UNCERTAIN.
     Route: 054
     Dates: start: 20151217, end: 20151217
  6. MYONAL (JAPAN) [Concomitant]
     Active Substance: EPERISONE HYDROCHLORIDE
     Dosage: DOSAGE IS UNCERTAIN.
     Route: 048
  7. PRORENAL (JAPAN) [Concomitant]
     Active Substance: LIMAPROST
     Route: 048
     Dates: start: 20151218
  8. MEMARY [Concomitant]
     Active Substance: MEMANTINE HYDROCHLORIDE
     Dosage: DOSAGE IS UNCERTAIN.
     Route: 048
     Dates: start: 20151215, end: 20151215
  9. EDIROL [Concomitant]
     Active Substance: ELDECALCITOL
     Dosage: DOSAGE IS UNCERTAIN.
     Route: 048
  10. COPEGUS [Suspect]
     Active Substance: RIBAVIRIN
     Indication: CHRONIC HEPATITIS C
     Dosage: 1 TABLET PER DAY FOR THREE DAYS A WEEK, AND 2 TABLETS PER DAY FOR THE OTHER FOUR DAYS OF THE WEEK.
     Route: 048
     Dates: start: 20151210, end: 20160106
  11. LUNESTA [Concomitant]
     Active Substance: ESZOPICLONE
     Dosage: DOSAGE IS UNCERTAIN.
     Route: 048
     Dates: start: 20151215, end: 20151224
  12. REFLEX [Concomitant]
     Active Substance: MIRTAZAPINE
     Dosage: DOSAGE IS UNCERTAIN.
     Route: 048
     Dates: start: 20151215, end: 20151224

REACTIONS (7)
  - Drowning [Fatal]
  - Rash [Recovered/Resolved]
  - Pain [Not Recovered/Not Resolved]
  - Post herpetic neuralgia [Unknown]
  - Haemoglobin decreased [Unknown]
  - White blood cell count decreased [Unknown]
  - Herpes zoster [Unknown]

NARRATIVE: CASE EVENT DATE: 20151210
